FAERS Safety Report 7410442-8 (Version None)
Quarter: 2011Q2

REPORT INFORMATION
  Report Type: 
  Country: None (occurrence: None)
  Receive Date: 20110413
  Receipt Date: 20110405
  Transmission Date: 20111010
  Serious: Yes (Hospitalization, Other)
  Sender: FDA-Public Use
  Company Number: US-ROCHE-552281

PATIENT
  Sex: Female
  Weight: 45.4 kg

DRUGS (19)
  1. ACCUTANE [Suspect]
     Route: 048
     Dates: start: 19990702, end: 19990810
  2. ACCUTANE [Suspect]
     Route: 048
     Dates: start: 20040105, end: 20040228
  3. LEXAPRO [Concomitant]
  4. ACCUTANE [Suspect]
     Route: 048
     Dates: start: 19990329, end: 19990330
  5. ACCUTANE [Suspect]
     Dosage: THE PATIENT WAS TAKING ISOTRETINOIN 10 MG EVERY OTHER DAY.
     Route: 048
     Dates: start: 20041223, end: 20050501
  6. ACCUTANE [Suspect]
     Route: 048
     Dates: start: 19990331, end: 19990411
  7. ACCUTANE [Suspect]
     Route: 048
     Dates: start: 20031208, end: 20040104
  8. ACCUTANE [Suspect]
     Route: 048
     Dates: start: 20040301, end: 20040429
  9. ACCUTANE [Suspect]
     Route: 048
     Dates: start: 20040720, end: 20040823
  10. TRAZODONE [Concomitant]
  11. ACCUTANE [Suspect]
     Route: 048
     Dates: start: 19990412, end: 19990426
  12. ACCUTANE [Suspect]
     Route: 048
     Dates: start: 19990427, end: 19990524
  13. ACCUTANE [Suspect]
     Dosage: THE PATIENT WAS TAKING ISOTRETINOIN 40 MG ALTERNATING WITH 60 MG DAILY.
     Route: 048
     Dates: start: 19990525, end: 19990701
  14. PROVIGIL [Concomitant]
  15. ACCUTANE [Suspect]
     Route: 048
     Dates: start: 20040430, end: 20040719
  16. ACCUTANE [Suspect]
     Dosage: THE PATIENT WAS TAKING ISOTRETINOIN 10 MG EVERY MONDAYS AND FRIDAYS.
     Route: 048
     Dates: start: 20041015, end: 20041222
  17. ACCUTANE [Suspect]
     Indication: ACNE
     Route: 048
     Dates: start: 19990301, end: 19990328
  18. ACCUTANE [Suspect]
     Dosage: THE PATIENT WAS TAKING ISOTRETINOIN 10 MG EVERY MONDAYS, WEDNESDAYS, AND FRIDAYS.
     Route: 048
     Dates: start: 20040824, end: 20041014
  19. REMICADE [Concomitant]

REACTIONS (25)
  - INFLAMMATORY BOWEL DISEASE [None]
  - BLOOD CHOLESTEROL INCREASED [None]
  - ANXIETY [None]
  - ILEAL STENOSIS [None]
  - COELIAC DISEASE [None]
  - INSOMNIA [None]
  - LIP DRY [None]
  - ANAL FISSURE [None]
  - ARTHRALGIA [None]
  - TOOTHACHE [None]
  - CROHN'S DISEASE [None]
  - MAJOR DEPRESSION [None]
  - PERIRECTAL ABSCESS [None]
  - BACK PAIN [None]
  - PHARYNGITIS [None]
  - DEPRESSION [None]
  - BLOOD TRIGLYCERIDES ABNORMAL [None]
  - EPISTAXIS [None]
  - VIRAL INFECTION [None]
  - BREAST HYPERPLASIA [None]
  - NASAL DRYNESS [None]
  - DRY SKIN [None]
  - ANAL FISTULA [None]
  - DRY MOUTH [None]
  - HEPATOMEGALY [None]
